FAERS Safety Report 9858748 (Version 5)
Quarter: 2014Q1

REPORT INFORMATION
  Report Type: Report from Study
  Country: GB (occurrence: GB)
  Receive Date: 20140131
  Receipt Date: 20140321
  Transmission Date: 20141002
  Serious: Yes (Hospitalization, Other)
  Sender: FDA-Public Use
  Company Number: GB-ROCHE-1339716

PATIENT
  Age: 59 Year
  Sex: Female
  Weight: 91.5 kg

DRUGS (34)
  1. PERTUZUMAB [Suspect]
     Indication: BREAST CANCER
     Dosage: LOADING DOSE
     Route: 042
     Dates: start: 20140115
  2. PERTUZUMAB [Suspect]
     Dosage: MAINTENANCE DOSE, DATE OF LAST DOSE PRIOR TO SAE: 15/JAN/2014
     Route: 042
  3. TRASTUZUMAB [Suspect]
     Indication: BREAST CANCER
     Dosage: LOADING DOSE
     Route: 042
     Dates: start: 20140115
  4. TRASTUZUMAB [Suspect]
     Dosage: MAINTENANCE DOSE, DATE OF LAST DOSE PRIOR TO SAE: 15/JAN/2014
     Route: 042
  5. DOCETAXEL [Suspect]
     Indication: BREAST CANCER
     Dosage: DATE OF LAST DOSE PRIOR TO SAE: 15/JAN/2014
     Route: 042
     Dates: start: 20140115
  6. DOCETAXEL [Suspect]
     Route: 042
     Dates: start: 20140205
  7. PARACETAMOL [Concomitant]
     Route: 065
     Dates: start: 20140221, end: 20140221
  8. PARACETAMOL [Concomitant]
     Route: 065
     Dates: start: 20140225, end: 20140225
  9. PARACETAMOL [Concomitant]
     Route: 065
     Dates: start: 20140310, end: 20140310
  10. SENNA [Concomitant]
     Route: 065
     Dates: start: 20140221, end: 20140221
  11. ZOPICLONE [Concomitant]
     Route: 065
     Dates: start: 20140221, end: 20140221
  12. MORPHINE SULPHATE DRIP [Concomitant]
     Route: 065
     Dates: start: 20140221, end: 20140221
  13. MORPHINE SULPHATE DRIP [Concomitant]
     Route: 065
     Dates: start: 20140226
  14. ORAMORPH [Concomitant]
     Dosage: AS NEEDED.  10MG/5ML
     Route: 065
     Dates: start: 20131213
  15. DOCUSATE [Concomitant]
     Route: 065
     Dates: start: 20140221, end: 20140221
  16. GENTAMYCIN [Concomitant]
     Route: 065
     Dates: start: 20140221, end: 20140221
  17. SANDO-K [Concomitant]
     Dosage: 2 TABLETS
     Route: 065
     Dates: start: 20140221, end: 20140221
  18. NACL .9% [Concomitant]
     Route: 065
     Dates: start: 20140221, end: 20140221
  19. HARTMANN^S SOLUTION [Concomitant]
     Dosage: 2 LITRE
     Route: 065
     Dates: start: 20140221, end: 20140221
  20. HARTMANN^S SOLUTION [Concomitant]
     Route: 065
     Dates: start: 20140222, end: 20140224
  21. PEGFILGRASTIM [Concomitant]
     Route: 065
     Dates: start: 20140205, end: 20140205
  22. NEULASTA [Concomitant]
     Route: 065
     Dates: start: 20140205, end: 20140205
  23. CO-AMOXICLAV [Concomitant]
     Route: 065
     Dates: start: 20140224, end: 20140309
  24. ENOXAPARIN SODIUM [Concomitant]
     Dosage: 40MG/0.4ML.
     Route: 065
     Dates: start: 20140222, end: 20140224
  25. LACTULOSE [Concomitant]
     Route: 048
     Dates: start: 20140225, end: 20140225
  26. PIPERACILLIN SODIUM/SULBACTAM SODIUM [Concomitant]
     Route: 065
     Dates: start: 20140222, end: 20140223
  27. PIPERACILLIN SODIUM/SULBACTAM SODIUM [Concomitant]
     Route: 065
     Dates: start: 20140224, end: 20140224
  28. TAMSULOSINE [Concomitant]
     Route: 065
     Dates: start: 20140224, end: 20140225
  29. ZOMORPH [Concomitant]
     Route: 065
     Dates: start: 20140223, end: 20140223
  30. ZOMORPH [Concomitant]
     Route: 065
     Dates: start: 20140224, end: 20140224
  31. ZOMORPH [Concomitant]
     Route: 065
     Dates: start: 20140225, end: 20140225
  32. ONDANSETRON [Concomitant]
     Route: 065
     Dates: start: 20140310, end: 20140310
  33. CHLORPHENIRAMINE [Concomitant]
     Route: 065
     Dates: start: 20140310, end: 20140310
  34. HYDROCORTISONE [Concomitant]
     Route: 065
     Dates: start: 20140310, end: 20140310

REACTIONS (2)
  - Neutropenic sepsis [Recovered/Resolved with Sequelae]
  - Back pain [Recovered/Resolved]
